FAERS Safety Report 8920886 (Version 13)
Quarter: 2015Q1

REPORT INFORMATION
  Report Type: Spontaneous
  Country: US (occurrence: US)
  Receive Date: 20121121
  Receipt Date: 20150217
  Transmission Date: 20150721
  Serious: Yes (Hospitalization, Other)
  Sender: FDA-Public Use
  Company Number: US-GLAXOSMITHKLINE-A0978208A

PATIENT
  Age: 69 Year
  Sex: Female
  Weight: 64.8 kg

DRUGS (14)
  1. FLOLAN [Suspect]
     Active Substance: EPOPROSTENOL SODIUM
     Dosage: UNK
     Dates: start: 20070327
  2. FLOLAN [Suspect]
     Active Substance: EPOPROSTENOL SODIUM
     Dosage: UNK
     Dates: start: 20070327
  3. FLOLAN [Suspect]
     Active Substance: EPOPROSTENOL SODIUM
     Dosage: UNK
     Dates: start: 20070327
  4. FLOLAN [Suspect]
     Active Substance: EPOPROSTENOL SODIUM
     Indication: COR PULMONALE CHRONIC
     Dosage: 21NG/KG/MIN, CO
     Route: 042
     Dates: start: 20070327
  5. FLOLAN [Suspect]
     Active Substance: EPOPROSTENOL SODIUM
     Dosage: UNK
     Dates: start: 20070327
  6. FLOLAN [Suspect]
     Active Substance: EPOPROSTENOL SODIUM
     Dosage: UNK
     Dates: start: 20070327
  7. FLOLAN [Suspect]
     Active Substance: EPOPROSTENOL SODIUM
     Dosage: 22NG/KG/MIN, CONCENTRATION 30,000 NG/ML, PUMP RATE 79 ML/DAY, VIAL STRENGTH 1.5 MG
  8. FLOLAN [Suspect]
     Active Substance: EPOPROSTENOL SODIUM
     Dosage: UNK
     Dates: start: 20070327
  9. TEGADERM [Suspect]
     Active Substance: 2-HYDROXYETHYL METHACRYLATE
  10. FLOLAN [Suspect]
     Active Substance: EPOPROSTENOL SODIUM
     Dosage: 22 NG/KG/MIN, CONCENTRATION 30,000 NG/ML, PUMP RATE 79 MG/DAY, VIAL STRENGTH 1.5 MG
     Route: 042
  11. POTASSIUM [Suspect]
     Active Substance: POTASSIUM
     Indication: PRODUCT USED FOR UNKNOWN INDICATION
     Dosage: UNK, U
     Route: 065
  12. FLOLAN [Suspect]
     Active Substance: EPOPROSTENOL SODIUM
     Dosage: UNK
     Dates: start: 20070327
  13. FLOLAN [Suspect]
     Active Substance: EPOPROSTENOL SODIUM
     Dosage: UNK
     Dates: start: 20070327
  14. REMODULIN [Suspect]
     Active Substance: TREPROSTINIL
     Indication: PULMONARY HYPERTENSION
     Dosage: UNK, U
     Route: 065
     Dates: start: 20141112

REACTIONS (36)
  - Headache [Recovering/Resolving]
  - Amnesia [Unknown]
  - Device misuse [Unknown]
  - Application site pruritus [Unknown]
  - Hot flush [Recovering/Resolving]
  - Device malfunction [Unknown]
  - Application site erythema [Unknown]
  - Malaise [Unknown]
  - Rectal prolapse [Unknown]
  - Loss of consciousness [Unknown]
  - Hyperhidrosis [Unknown]
  - Therapy cessation [Unknown]
  - Blood potassium decreased [Unknown]
  - Fall [Unknown]
  - Blood urine present [Recovered/Resolved]
  - Flushing [Unknown]
  - Urinary tract infection [Unknown]
  - Asthenia [Unknown]
  - Fatigue [Unknown]
  - Diarrhoea [Unknown]
  - Weight increased [Unknown]
  - Abdominal discomfort [Unknown]
  - Dermatitis contact [Unknown]
  - Dyspnoea [Unknown]
  - Palpitations [Unknown]
  - Hypotension [Unknown]
  - Memory impairment [Unknown]
  - Dizziness [Unknown]
  - Joint injury [Unknown]
  - Peripheral swelling [Unknown]
  - Fluid retention [Unknown]
  - Device infusion issue [Recovered/Resolved]
  - Fluid retention [Unknown]
  - Nausea [Recovering/Resolving]
  - Infection [Unknown]
  - Nervousness [Unknown]

NARRATIVE: CASE EVENT DATE: 20120514
